FAERS Safety Report 5169452-6 (Version None)
Quarter: 2006Q4

REPORT INFORMATION
  Report Type: 
  Country: None (occurrence: None)
  Receive Date: 20061201
  Receipt Date: 20061121
  Transmission Date: 20070319
  Serious: Yes (Other)
  Sender: FDA-Public Use
  Company Number: 2006123504

PATIENT
  Sex: Female
  Weight: 68.0396 kg

DRUGS (9)
  1. ZOLOFT [Suspect]
     Indication: PANIC ATTACK
     Dosage: 50 MG (50 MG,1 IN 1 D)
  2. ZOLOFT [Suspect]
     Indication: STRESS
     Dosage: 50 MG (50 MG,1 IN 1 D)
  3. TAXOL [Suspect]
     Indication: BREAST CANCER
     Dosage: INTRAVENOUS
     Dates: start: 20060101
  4. CHEMOTHERAPY NOS (CHEMOTHERAPY NOS) [Suspect]
     Indication: BREAST CANCER
     Dates: start: 20060101
  5. TEMAZEPAM [Concomitant]
  6. B COMPLEX (NICOTINAMIDE, PYRIDOXINE HYDROCHLORIDE, RIBOFLAVIN, THIAMIN [Concomitant]
  7. THIAMINE [Concomitant]
  8. GRAPE SEED EXTRACT (VITIS VINIFERA EXTRACT) [Concomitant]
  9. ATENOLOL [Concomitant]

REACTIONS (6)
  - BREAST CANCER FEMALE [None]
  - CONDITION AGGRAVATED [None]
  - NEUROPATHY [None]
  - PANIC ATTACK [None]
  - SKIN DISORDER [None]
  - STRESS [None]
